FAERS Safety Report 5141845-2 (Version None)
Quarter: 2006Q4

REPORT INFORMATION
  Report Type: 
  Country: None (occurrence: None)
  Receive Date: 20061027
  Receipt Date: 20061010
  Transmission Date: 20070319
  Serious: Yes (Hospitalization)
  Sender: FDA-Public Use
  Company Number: DSA_28855_2006

PATIENT
  Age: 80 Year
  Sex: Female

DRUGS (6)
  1. RENIVACE [Suspect]
     Indication: CARDIAC FAILURE
     Dosage: 5 MG QD PO
     Route: 048
     Dates: end: 20060629
  2. RENIVACE [Suspect]
     Indication: HYPERTENSION
     Dosage: 5 MG QD PO
     Route: 048
     Dates: end: 20060629
  3. ALLOPURINOL [Suspect]
     Indication: HYPERURICAEMIA
     Dosage: 100 MG QD PO
     Route: 048
     Dates: start: 20060529, end: 20060629
  4. ADALAT [Suspect]
     Indication: HYPERTENSION
     Dosage: 40 MG QD PO
     Route: 048
     Dates: end: 20060629
  5. PURSENNID /00142207/ [Suspect]
     Indication: CONSTIPATION
     Dosage: 24 MG PRN PO
     Route: 048
     Dates: end: 20060629
  6. LASIX [Suspect]
     Indication: CARDIAC FAILURE
     Dosage: 40 MG QD PO
     Route: 048
     Dates: end: 20060629

REACTIONS (5)
  - ALANINE AMINOTRANSFERASE INCREASED [None]
  - ASPARTATE AMINOTRANSFERASE INCREASED [None]
  - PLATELET COUNT DECREASED [None]
  - STEVENS-JOHNSON SYNDROME [None]
  - WHITE BLOOD CELL COUNT DECREASED [None]
